FAERS Safety Report 25433981 (Version 2)
Quarter: 2025Q2

REPORT INFORMATION
  Report Type: Report from Study
  Country: US (occurrence: US)
  Receive Date: 20250613
  Receipt Date: 20250618
  Transmission Date: 20250717
  Serious: Yes (Other)
  Sender: ROCHE
  Company Number: US-ROCHE-10000308540

PATIENT

DRUGS (1)
  1. HEMLIBRA [Suspect]
     Active Substance: EMICIZUMAB-KXWH
     Indication: Factor VIII deficiency
     Route: 065

REACTIONS (5)
  - Factor IX deficiency [Unknown]
  - Von Willebrand^s disease [Unknown]
  - Sickle cell anaemia [Unknown]
  - Myelodysplastic syndrome [Unknown]
  - Leukaemia [Unknown]
